FAERS Safety Report 7610878-6 (Version None)
Quarter: 2011Q3

REPORT INFORMATION
  Report Type: 
  Country: None (occurrence: None)
  Receive Date: 20110715
  Receipt Date: 20110708
  Transmission Date: 20111222
  Serious: Yes (Hospitalization, Other)
  Sender: FDA-Public Use
  Company Number: US-BAYER-201039838NA

PATIENT
  Age: 22 Year
  Sex: Female
  Weight: 113.38 kg

DRUGS (15)
  1. YASMIN [Suspect]
     Indication: ACNE
     Dosage: UNK
     Dates: start: 20020801, end: 20090601
  2. LEXAPRO [Concomitant]
     Indication: ANXIETY
  3. ZOLOFT [Concomitant]
     Indication: DEPRESSION
     Dosage: UNK
     Dates: start: 19990101
  4. DOXYCYCLINE [Concomitant]
     Dosage: 50 MG, QD
  5. ACIPHEX [Concomitant]
     Indication: GASTROOESOPHAGEAL REFLUX DISEASE
     Dosage: 20 MG, QD
     Dates: start: 19940101
  6. PREVACID [Concomitant]
     Dosage: UNK
     Dates: start: 19940101
  7. ACIPHEX [Concomitant]
     Indication: GASTRITIS
  8. PROTONIX [Concomitant]
     Indication: GASTROOESOPHAGEAL REFLUX DISEASE
     Dosage: UNK
     Dates: start: 19940101
  9. ACIDOPHILUS [Concomitant]
  10. DIOVAN [Concomitant]
     Dosage: UNK
     Dates: start: 20050101, end: 20100101
  11. LEXAPRO [Concomitant]
     Indication: DEPRESSION
     Dosage: 10 MG, QD
     Dates: start: 19990101
  12. COZAAR [Concomitant]
     Dosage: UNK
     Dates: start: 20010101, end: 20050101
  13. FLAXSEED OIL [Concomitant]
  14. PROTONIX [Concomitant]
     Indication: GASTRITIS
  15. PAXIL [Concomitant]
     Indication: DEPRESSION
     Dosage: UNK
     Dates: start: 19990101

REACTIONS (3)
  - CHOLELITHIASIS [None]
  - GALLBLADDER DISORDER [None]
  - CHOLECYSTITIS CHRONIC [None]
